FAERS Safety Report 17578661 (Version 1)
Quarter: 2020Q1

REPORT INFORMATION
  Report Type: Spontaneous
  Country: US (occurrence: US)
  Receive Date: 20200324
  Receipt Date: 20200324
  Transmission Date: 20200409
  Serious: Yes (Other)
  Sender: FDA-Public Use
  Company Number: US-NOVOPROD-712453

PATIENT
  Age: 58 Year
  Sex: Female

DRUGS (1)
  1. TRESIBA [Suspect]
     Active Substance: INSULIN DEGLUDEC
     Indication: PRODUCT USED FOR UNKNOWN INDICATION
     Dosage: UNK
     Route: 058
     Dates: start: 20190914

REACTIONS (16)
  - Mood swings [Unknown]
  - Fatigue [Unknown]
  - Myalgia [Unknown]
  - Injection site urticaria [Recovered/Resolved]
  - Memory impairment [Unknown]
  - Back pain [Unknown]
  - Disorientation [Unknown]
  - Muscular weakness [Unknown]
  - Lung disorder [Unknown]
  - Renal function test abnormal [Unknown]
  - Periorbital swelling [Unknown]
  - Contusion [Unknown]
  - Decreased appetite [Unknown]
  - Ocular hyperaemia [Unknown]
  - Micturition frequency decreased [Unknown]
  - Confusional state [Unknown]

NARRATIVE: CASE EVENT DATE: 20190914
